FAERS Safety Report 10196813 (Version 1)
Quarter: 2014Q2

REPORT INFORMATION
  Report Type: Spontaneous
  Country: DE (occurrence: DE)
  Receive Date: 20140527
  Receipt Date: 20140527
  Transmission Date: 20141212
  Serious: Yes (Other)
  Sender: FDA-Public Use
  Company Number: DE-PFIZER INC-2014141547

PATIENT
  Age: 30 Year
  Sex: Female
  Weight: 87 kg

DRUGS (3)
  1. SERTRALINE HCL [Suspect]
     Indication: BIPOLAR DISORDER
     Dosage: 50 MG, 1X/DAY
     Route: 048
     Dates: start: 20130304
  2. SEROQUEL PROLONG [Suspect]
     Indication: BIPOLAR DISORDER
     Dosage: 150 MG, DAILY
     Route: 048
     Dates: start: 20121213, end: 2013
  3. SEROQUEL PROLONG [Suspect]
     Dosage: 50 MG, DAILY
     Route: 048
     Dates: start: 2013

REACTIONS (3)
  - Placental insufficiency [Recovered/Resolved]
  - Foetal death [Recovered/Resolved]
  - Glucose tolerance impaired in pregnancy [Recovered/Resolved]
